FAERS Safety Report 9473262 (Version 2)
Quarter: 2013Q3

REPORT INFORMATION
  Report Type: Spontaneous
  Country: US (occurrence: US)
  Receive Date: 20130823
  Receipt Date: 20130823
  Transmission Date: 20140515
  Serious: No
  Sender: FDA-Public Use
  Company Number: US-GALDERMA-US-GDP-12413425

PATIENT
  Age: 63 Year
  Sex: Female
  Weight: 91 kg

DRUGS (8)
  1. METROGEL [Suspect]
     Indication: ROSACEA
     Route: 061
     Dates: end: 20120401
  2. JAFRA MOISTURIZER [Concomitant]
     Indication: THERAPEUTIC SKIN CARE TOPICAL
     Route: 061
     Dates: start: 1977
  3. JAFRA ROYAL JELLY [Concomitant]
     Indication: THERAPEUTIC SKIN CARE TOPICAL
     Route: 061
     Dates: start: 1977
  4. JAFRA SKIN CLEANSER [Concomitant]
     Indication: THERAPEUTIC SKIN CARE TOPICAL
     Route: 061
     Dates: start: 1977
  5. JAFRA SKIN TONER [Concomitant]
     Indication: THERAPEUTIC SKIN CARE TOPICAL
     Route: 061
     Dates: start: 1977
  6. CALTRATE [Concomitant]
  7. ALEVE [Concomitant]
  8. MULTIVITAMIN [Concomitant]

REACTIONS (1)
  - Drug effect decreased [Recovered/Resolved]
